FAERS Safety Report 18296721 (Version 1)
Quarter: 2020Q3

REPORT INFORMATION
  Report Type: Spontaneous
  Country: SI (occurrence: SI)
  Receive Date: 20200922
  Receipt Date: 20200922
  Transmission Date: 20201103
  Serious: Yes (Other)
  Sender: FDA-Public Use
  Company Number: SI-PFIZER INC-2020361245

PATIENT
  Age: 40 Year
  Sex: Female

DRUGS (1)
  1. CRIZOTINIB [Suspect]
     Active Substance: CRIZOTINIB
     Indication: LUNG ADENOCARCINOMA
     Dosage: 250 MG, 2X/DAY
     Dates: start: 201608

REACTIONS (8)
  - Fall [Unknown]
  - Nausea [Unknown]
  - Vertigo [Unknown]
  - Balance disorder [Unknown]
  - Vomiting [Unknown]
  - Oedema peripheral [Unknown]
  - Neoplasm progression [Unknown]
  - Visual impairment [Unknown]

NARRATIVE: CASE EVENT DATE: 201703
